FAERS Safety Report 9474085 (Version 1)
Quarter: 2013Q3

REPORT INFORMATION
  Report Type: Spontaneous
  Country: US (occurrence: US)
  Receive Date: 20130823
  Receipt Date: 20130823
  Transmission Date: 20140515
  Serious: Yes (Other)
  Sender: FDA-Public Use
  Company Number: US-ROXANE LABORATORIES, INC.-2013-RO-01381RO

PATIENT
  Sex: 0

DRUGS (5)
  1. CODEINE SULFATE [Suspect]
     Indication: SEDATION
     Route: 048
  2. CODEINE SULFATE [Suspect]
     Indication: ANALGESIC THERAPY
  3. PARACETAMOL [Suspect]
     Indication: ANALGESIC THERAPY
     Route: 048
  4. MIDAZOLAM [Suspect]
     Indication: SEDATION
     Route: 048
  5. MIDAZOLAM [Suspect]
     Indication: ANALGESIC THERAPY

REACTIONS (1)
  - Irritability [Unknown]
